FAERS Safety Report 18699039 (Version 1)
Quarter: 2021Q1

REPORT INFORMATION
  Report Type: Spontaneous
  Country: CN (occurrence: CN)
  Receive Date: 20210104
  Receipt Date: 20210104
  Transmission Date: 20210419
  Serious: Yes (Other)
  Sender: FDA-Public Use
  Company Number: CN-PFIZER INC-2021000306

PATIENT
  Age: 47 Year
  Sex: Female
  Weight: 63 kg

DRUGS (3)
  1. DA HUO LUO [Concomitant]
     Indication: NECK PAIN
     Dosage: 4 DF, 3X/DAY
     Route: 048
     Dates: start: 20201208, end: 20201215
  2. CELEBREX [Suspect]
     Active Substance: CELECOXIB
     Indication: NECK PAIN
     Dosage: 0.2 G, 1X/DAY
     Route: 048
     Dates: start: 20201208, end: 20201215
  3. DA HUO LUO [Concomitant]
     Indication: HYPOAESTHESIA

REACTIONS (2)
  - Abdominal discomfort [Recovering/Resolving]
  - Abdominal distension [Recovering/Resolving]

NARRATIVE: CASE EVENT DATE: 20201215
